FAERS Safety Report 15895826 (Version 2)
Quarter: 2019Q1

REPORT INFORMATION
  Report Type: Spontaneous
  Country: US (occurrence: US)
  Receive Date: 20190131
  Receipt Date: 20190306
  Transmission Date: 20190417
  Serious: No
  Sender: FDA-Public Use
  Company Number: US-TEVA-2019-US-995236

PATIENT
  Age: 15 Year
  Sex: Female

DRUGS (1)
  1. SERTRALINE [Suspect]
     Active Substance: SERTRALINE HYDROCHLORIDE
     Indication: DEPRESSION
     Route: 065
     Dates: end: 201801

REACTIONS (4)
  - Attention deficit/hyperactivity disorder [Unknown]
  - Affective disorder [Unknown]
  - Perseveration [Unknown]
  - Paranoia [Unknown]
